FAERS Safety Report 10163293 (Version 3)
Quarter: 2014Q2

REPORT INFORMATION
  Report Type: Spontaneous
  Country: FR (occurrence: FR)
  Receive Date: 20140509
  Receipt Date: 20140520
  Transmission Date: 20141212
  Serious: Yes (Other)
  Sender: FDA-Public Use
  Company Number: FR-NAPPMUNDI-GBR-2014-0017875

PATIENT
  Sex: Male

DRUGS (2)
  1. OXYCONTIN LP 120 MG, COMPRIME PELLICULE A LIBERATION PROLONGEE [Suspect]
     Indication: ARTHRODESIS
     Dosage: 6 TABLET, BID
     Route: 048
  2. OXYNORM, GELULE [Suspect]
     Indication: ARTHRODESIS
     Dosage: 40 MG, UNK
     Route: 048

REACTIONS (4)
  - Drug dependence [Not Recovered/Not Resolved]
  - Drug abuse [Not Recovered/Not Resolved]
  - Intentional product misuse [Not Recovered/Not Resolved]
  - Aggression [Not Recovered/Not Resolved]
